FAERS Safety Report 8902559 (Version 6)
Quarter: 2013Q4

REPORT INFORMATION
  Report Type: Spontaneous
  Country: US (occurrence: US)
  Receive Date: 20121112
  Receipt Date: 20131017
  Transmission Date: 20140711
  Serious: Yes (Hospitalization, Other)
  Sender: FDA-Public Use
  Company Number: US-PFIZER INC-2012280334

PATIENT
  Age: 83 Year
  Sex: Female
  Weight: 49.4 kg

DRUGS (12)
  1. LIPITOR [Suspect]
     Indication: BLOOD CHOLESTEROL INCREASED
     Dosage: 20 MG, DAILY
     Route: 048
  2. ACCUPRIL [Suspect]
     Indication: HYPERTENSION
     Dosage: UNK
     Route: 048
     Dates: end: 20120827
  3. GLUCOTROL XL [Suspect]
     Indication: DIABETES MELLITUS
     Dosage: 10 MG, 2X/DAY
  4. METFORMIN [Concomitant]
     Indication: DIABETES MELLITUS
     Dosage: 500 MG, 2X/DAY
  5. JANUVIA [Concomitant]
     Indication: DIABETES MELLITUS
     Dosage: 100 MG, UNK
  6. MAGNESIUM [Concomitant]
     Dosage: UNK
  7. CARVEDILOL [Concomitant]
     Dosage: 12.5 MG, UNK
  8. FUROSEMIDE [Concomitant]
     Dosage: 20 MG, UNK
  9. PANTOPRAZOLE [Concomitant]
     Dosage: 40 MG, UNK
  10. AMIODARONE [Concomitant]
     Dosage: 200 MG, UNK
  11. LISINOPRIL [Concomitant]
     Dosage: UNK
  12. WARFARIN [Concomitant]
     Dosage: UNK

REACTIONS (2)
  - Carotid artery disease [Unknown]
  - Cardiac valve disease [Recovered/Resolved]
